FAERS Safety Report 13179633 (Version 2)
Quarter: 2017Q3

REPORT INFORMATION
  Report Type: Spontaneous
  Country: GB (occurrence: GB)
  Receive Date: 20170202
  Receipt Date: 20170707
  Transmission Date: 20171127
  Serious: Yes (Disabling)
  Sender: FDA-Public Use
  Company Number: GB-TEVA-735617ACC

PATIENT
  Age: 41 Year
  Sex: Female
  Weight: 66 kg

DRUGS (14)
  1. ALZAIN [Concomitant]
     Dosage: 2 DOSAGE FORMS DAILY;
     Dates: start: 20161230
  2. CITALOPRAM [Concomitant]
     Active Substance: CITALOPRAM HYDROBROMIDE
     Dosage: 1 DOSAGE FORMS DAILY;
     Dates: start: 20150922
  3. COCODAMOL [Concomitant]
     Active Substance: ACETAMINOPHEN\CODEINE PHOSPHATE
     Dosage: ONE OR TWO TO BE TAKEN
     Dates: start: 20170112
  4. LANSOPRAZOLE. [Concomitant]
     Active Substance: LANSOPRAZOLE
     Dosage: 1 DOSAGE FORMS DAILY;
     Dates: start: 20160201
  5. NAPROXEN. [Suspect]
     Active Substance: NAPROXEN
     Indication: BACK PAIN
     Dates: start: 20170116
  6. CEFALEXIN [Concomitant]
     Active Substance: CEPHALEXIN
     Dosage: 4 DOSAGE FORMS DAILY;
     Dates: start: 20161019, end: 20161026
  7. LEVOTHYROXINE. [Concomitant]
     Active Substance: LEVOTHYROXINE
     Dosage: 1 DOSAGE FORMS DAILY;
     Dates: start: 20150922
  8. LIDOCAINE. [Concomitant]
     Active Substance: LIDOCAINE
     Dosage: APPLY 2-3 TIMES DAILY TO MOUTH.
     Dates: start: 20170116
  9. GABAPENTIN. [Concomitant]
     Active Substance: GABAPENTIN
     Dosage: TAKE ONE DAILY FOR TWO DAYS AND INCREAS...
     Dates: start: 20161031, end: 20161130
  10. NEDOCROMIL SODIUM. [Concomitant]
     Active Substance: NEDOCROMIL SODIUM
     Dosage: 12 GTT DAILY;
     Route: 050
     Dates: start: 20161222
  11. DIAZEPAM. [Concomitant]
     Active Substance: DIAZEPAM
     Dosage: 3 DOSAGE FORMS DAILY;
     Dates: start: 20170111
  12. TRAMADOL. [Concomitant]
     Active Substance: TRAMADOL
     Dosage: TAKE 1 OR 2 FOUR TIMES DAILY.
     Dates: start: 20161121, end: 20161122
  13. BENZYDAMINE HYDROCHLORIDE [Concomitant]
     Active Substance: BENZYDAMINE HYDROCHLORIDE
     Dosage: 120 ML DAILY;
     Dates: start: 20170116
  14. CHLORPHENAMINE [Concomitant]
     Active Substance: CHLORPHENIRAMINE MALEATE
     Dosage: EVERY 4-6 HOURS.
     Dates: start: 20170116

REACTIONS (2)
  - Genital ulceration [Not Recovered/Not Resolved]
  - Mouth ulceration [Not Recovered/Not Resolved]

NARRATIVE: CASE EVENT DATE: 20170116
